FAERS Safety Report 18364273 (Version 1)
Quarter: 2020Q4

REPORT INFORMATION
  Report Type: Spontaneous
  Country: US (occurrence: US)
  Receive Date: 20201008
  Receipt Date: 20201008
  Transmission Date: 20210114
  Serious: Yes (Hospitalization)
  Sender: FDA-Public Use
  Company Number: None

PATIENT
  Age: 66 Year
  Sex: Female

DRUGS (1)
  1. ICATIBANT [Suspect]
     Active Substance: ICATIBANT ACETATE
     Indication: HEREDITARY ANGIOEDEMA
     Dosage: ?          OTHER FREQUENCY:AT ONSET OF HAE;?
     Route: 058
     Dates: start: 20190919

REACTIONS (2)
  - Rib fracture [None]
  - Physical assault [None]

NARRATIVE: CASE EVENT DATE: 20200925
